FAERS Safety Report 6439041-1 (Version None)
Quarter: 2009Q4

REPORT INFORMATION
  Report Type: 
  Country: None (occurrence: None)
  Receive Date: 20091111
  Receipt Date: 20091111
  Transmission Date: 20100525
  Serious: Yes (Other)
  Sender: FDA-Public Use
  Company Number: None

PATIENT
  Age: 26 Year
  Sex: Male
  Weight: 82.5547 kg

DRUGS (1)
  1. CIPROFLOXACIN 500MG RETURNED BOTTLE [Suspect]
     Indication: PHARYNGITIS STREPTOCOCCAL
     Dosage: 500MG 2 PO
     Route: 048
     Dates: start: 20091109, end: 20091109

REACTIONS (6)
  - ANXIETY [None]
  - APPARENT DEATH [None]
  - HEART RATE INCREASED [None]
  - MOOD SWINGS [None]
  - PALPITATIONS [None]
  - PANIC ATTACK [None]
